FAERS Safety Report 10856059 (Version 1)
Quarter: 2015Q1

REPORT INFORMATION
  Report Type: Spontaneous
  Country: US (occurrence: US)
  Receive Date: 20150222
  Receipt Date: 20150222
  Transmission Date: 20150721
  Serious: No
  Sender: FDA-Public Use
  Company Number: US-ALLERGAN-1419591US

PATIENT
  Age: 64 Year
  Sex: Male

DRUGS (2)
  1. BOTOX [Suspect]
     Active Substance: ONABOTULINUMTOXINA
     Indication: SPASMODIC DYSPHONIA
     Dosage: 0.25 UNITS, SINGLE
     Route: 030
     Dates: start: 20140501, end: 20140501
  2. BOTOX [Suspect]
     Active Substance: ONABOTULINUMTOXINA
     Indication: LARYNGOSPASM

REACTIONS (2)
  - Dysphonia [Recovered/Resolved]
  - Off label use [Unknown]

NARRATIVE: CASE EVENT DATE: 20140501
